FAERS Safety Report 19638757 (Version 2)
Quarter: 2021Q3

REPORT INFORMATION
  Report Type: Spontaneous
  Country: US (occurrence: US)
  Receive Date: 20210730
  Receipt Date: 20210823
  Transmission Date: 20211014
  Serious: No
  Sender: FDA-Public Use
  Company Number: US-SLATE RUN PHARMACEUTICALS-21US000592

PATIENT

DRUGS (1)
  1. BUPROPION HYDROCHLORIDE EXTENDED RELEASE USP (XL) [Suspect]
     Active Substance: BUPROPION HYDROCHLORIDE
     Indication: PRODUCT USED FOR UNKNOWN INDICATION
     Dosage: UNK
     Dates: start: 202106

REACTIONS (4)
  - Drug ineffective [Unknown]
  - Crying [Unknown]
  - Product substitution issue [Unknown]
  - Depression [Unknown]

NARRATIVE: CASE EVENT DATE: 202106
